FAERS Safety Report 6558262-0 (Version None)
Quarter: 2010Q1

REPORT INFORMATION
  Report Type: 
  Country: None (occurrence: None)
  Receive Date: 20100129
  Receipt Date: 20100121
  Transmission Date: 20100710
  Serious: No
  Sender: FDA-Public Use
  Company Number: US-B.I. PHARMACEUTICALS,INC./RIDGEFIELD-2010-BP-00806PF

PATIENT
  Age: 78 Year
  Sex: Female

DRUGS (8)
  1. SPIRIVA [Suspect]
     Indication: ASTHMA
     Dosage: 18 MCG
     Route: 055
     Dates: start: 20080601, end: 20080601
  2. BENICAR [Concomitant]
     Indication: HYPERTENSION
     Route: 048
     Dates: start: 20060101
  3. METOPROLOL [Concomitant]
     Indication: HYPERTENSION
     Route: 048
     Dates: start: 20060101
  4. ALLOPURINOL [Concomitant]
     Indication: GOUT
     Route: 048
  5. SYMBICORT [Concomitant]
     Indication: HYPERSENSITIVITY
     Route: 055
  6. TRIEMTERENE [Concomitant]
     Indication: HYPERTENSION
     Route: 048
  7. SYNTHROID [Concomitant]
     Indication: HYPOTHYROIDISM
     Route: 048
  8. XALATAN [Concomitant]
     Indication: GLAUCOMA
     Dates: start: 19990101

REACTIONS (2)
  - COUGH [None]
  - HYPERSENSITIVITY [None]
